FAERS Safety Report 10690225 (Version 5)
Quarter: 2015Q1

REPORT INFORMATION
  Report Type: Spontaneous
  Country: JP (occurrence: JP)
  Receive Date: 20150105
  Receipt Date: 20150219
  Transmission Date: 20150720
  Serious: Yes (Other)
  Sender: FDA-Public Use
  Company Number: JP-ABBVIE-14P-087-1322963-00

PATIENT
  Age: 48 Year
  Sex: Female

DRUGS (12)
  1. MAGLAX [Concomitant]
     Active Substance: MAGNESIUM OXIDE
     Indication: CONSTIPATION
     Route: 048
  2. CLARITH TAB 200MG [Suspect]
     Active Substance: CLARITHROMYCIN
     Indication: OSTEOMYELITIS
     Route: 048
     Dates: start: 20140516, end: 20141118
  3. DEXART [Concomitant]
     Active Substance: DEXAMETHASONE SODIUM PHOSPHATE
     Indication: ADJUVANT THERAPY
     Route: 050
     Dates: start: 20140401
  4. PACLITAXEL. [Concomitant]
     Active Substance: PACLITAXEL
     Indication: MALIGNANT NEOPLASM OF RENAL PELVIS
     Route: 050
     Dates: start: 20141028, end: 20141028
  5. ALOXI [Concomitant]
     Active Substance: PALONOSETRON HYDROCHLORIDE
     Indication: ADJUVANT THERAPY
     Route: 050
     Dates: start: 20140401, end: 20141210
  6. CALCIUM LACTATE [Concomitant]
     Active Substance: CALCIUM LACTATE
     Indication: ADJUVANT THERAPY
     Route: 048
     Dates: start: 20140408, end: 20140427
  7. CISPLATIN. [Concomitant]
     Active Substance: CISPLATIN
     Indication: MALIGNANT NEOPLASM OF RENAL PELVIS
     Route: 050
     Dates: start: 20140401
  8. FOSAPREPITANT MEGLUMINE [Concomitant]
     Active Substance: FOSAPREPITANT
     Indication: ADJUVANT THERAPY
     Dosage: DAILY DOSE: 150 MG (150 MG, SID)
     Route: 050
     Dates: start: 20140401
  9. FERROMIA [Concomitant]
     Active Substance: FERROUS CITRATE
     Indication: IRON DEFICIENCY ANAEMIA
     Route: 048
     Dates: start: 20140330
  10. GEMZAR [Suspect]
     Active Substance: GEMCITABINE HYDROCHLORIDE
     Indication: MALIGNANT NEOPLASM OF RENAL PELVIS
     Dosage: 1000 MG/M2, (1400, 1000, 880 SID)
     Route: 050
     Dates: start: 20140331
  11. ISOBIDE [Concomitant]
     Active Substance: ISOSORBIDE
     Indication: MENIERE^S DISEASE
     Route: 048
     Dates: start: 20110926
  12. DENOSUMAB [Concomitant]
     Active Substance: DENOSUMAB
     Indication: METASTASES TO BONE
     Dosage: DAILY DOSE: 120 MG (120 MG, SID)
     Route: 058
     Dates: start: 20140324, end: 20140517

REACTIONS (1)
  - Pancytopenia [Recovering/Resolving]

NARRATIVE: CASE EVENT DATE: 201405
